FAERS Safety Report 13383283 (Version 1)
Quarter: 2017Q1

REPORT INFORMATION
  Report Type: Spontaneous
  Country: US (occurrence: US)
  Receive Date: 20170329
  Receipt Date: 20170329
  Transmission Date: 20170429
  Serious: No
  Sender: FDA-Public Use
  Company Number: US-RISING PHARMACEUTICALS, INC.-2017RIS00027

PATIENT
  Age: 85 Year
  Sex: Female
  Weight: 45.35 kg

DRUGS (4)
  1. SILDENAFIL. [Concomitant]
     Active Substance: SILDENAFIL
     Indication: CARDIAC FAILURE
  2. WARFARIN [Suspect]
     Active Substance: WARFARIN
     Dosage: 5 OR 10 MG
  3. OFLOXACIN. [Suspect]
     Active Substance: OFLOXACIN
     Indication: EAR CANAL STENOSIS
     Dosage: 1 DROP, 4X/DAY
  4. UNSPECIFIED BLOOD PRESSURE MEDICATION [Concomitant]
     Active Substance: UNSPECIFIED INGREDIENT

REACTIONS (1)
  - International normalised ratio increased [Unknown]

NARRATIVE: CASE EVENT DATE: 201701
